FAERS Safety Report 8242740-2 (Version None)
Quarter: 2012Q1

REPORT INFORMATION
  Report Type: 
  Country: None (occurrence: None)
  Receive Date: 20120329
  Receipt Date: 20120319
  Transmission Date: 20120608
  Serious: Yes (Other)
  Sender: FDA-Public Use
  Company Number: BR-BRISTOL-MYERS SQUIBB COMPANY-16476897

PATIENT
  Age: 35 Year
  Sex: Female

DRUGS (9)
  1. CLONAZEPAM [Concomitant]
  2. ATENOLOL [Concomitant]
  3. VALPROATE SODIUM [Concomitant]
  4. SIMVASTATIN [Concomitant]
  5. ISOSORBIDE MONONITRATE [Concomitant]
  6. CAPTOPRIL [Concomitant]
  7. GLYBURIDE [Concomitant]
  8. AMLODIPINE [Concomitant]
  9. METFORMIN HCL [Suspect]
     Indication: DIABETES MELLITUS
     Dates: start: 20120312

REACTIONS (5)
  - TREMOR [None]
  - HEADACHE [None]
  - SYNCOPE [None]
  - ANGINA PECTORIS [None]
  - ABDOMINAL PAIN UPPER [None]
